FAERS Safety Report 24274728 (Version 4)
Quarter: 2024Q4

REPORT INFORMATION
  Report Type: Report from Study
  Country: US (occurrence: US)
  Receive Date: 20240902
  Receipt Date: 20241230
  Transmission Date: 20250115
  Serious: Yes (Other)
  Sender: TAKEDA
  Company Number: US-TAKEDA-US202000259

PATIENT
  Age: 36 Year
  Sex: Male

DRUGS (7)
  1. ICATIBANT [Suspect]
     Active Substance: ICATIBANT ACETATE
     Indication: Pharyngeal swelling
     Dosage: UNK
  2. ICATIBANT [Suspect]
     Active Substance: ICATIBANT ACETATE
  3. CINRYZE [Suspect]
     Active Substance: HUMAN C1-ESTERASE INHIBITOR
     Indication: Immune system disorder
     Dosage: 1000 INTERNATIONAL UNIT
  4. CINRYZE [Suspect]
     Active Substance: HUMAN C1-ESTERASE INHIBITOR
     Dosage: 1000 INTERNATIONAL UNIT
  5. CINRYZE [Suspect]
     Active Substance: HUMAN C1-ESTERASE INHIBITOR
     Dosage: 1000 INTERNATIONAL UNIT
  6. CINRYZE [Suspect]
     Active Substance: HUMAN C1-ESTERASE INHIBITOR
     Dosage: 1000 INTERNATIONAL UNIT, 2/WEEK
  7. BERINERT [Concomitant]
     Active Substance: HUMAN C1-ESTERASE INHIBITOR
     Dosage: UNK

REACTIONS (8)
  - Diabetes mellitus [Unknown]
  - Circumstance or information capable of leading to medication error [Unknown]
  - Poor venous access [Unknown]
  - Weight increased [Unknown]
  - Product dose omission issue [Unknown]
  - Hereditary angioedema [Recovered/Resolved]
  - Feeling abnormal [Unknown]
  - Emotional disorder [Unknown]

NARRATIVE: CASE EVENT DATE: 20191224
